FAERS Safety Report 10244478 (Version 1)
Quarter: 2014Q1

REPORT INFORMATION
  Report Type: Spontaneous
  Country: US (occurrence: None)
  Receive Date: 20140306
  Receipt Date: 20140306
  Transmission Date: 20141002
  Serious: Yes (Hospitalization, Other)
  Sender: FDA-Public Use
  Company Number: 163-21880-13014747

PATIENT
  Age: 58 Year
  Sex: Female

DRUGS (13)
  1. REVLIMID (LENALIDOMIDE) (10 MILLIGRAM, CAPSULES) [Suspect]
     Indication: 5Q MINUS SYNDROME
     Route: 048
     Dates: start: 20110525
  2. CIPRO (CIPROFLOXACIN) (UNKNOWN) [Concomitant]
  3. ACYCLOVIR (ACICLOVIR) (UNKNOWN) [Concomitant]
  4. VORICONAZOLE (UNKNOWN) [Concomitant]
  5. ALLOPURINOL (UNKNOWN) [Concomitant]
  6. CALCIUM VITAMIN D (CALCIUM D3 ^STADA^) (UNKNOWN) [Concomitant]
  7. COUMADIN (WARFARIN SODIUM) (UNKNOWN) [Concomitant]
  8. FISH OIL (UNKNOWN) [Concomitant]
  9. PROTONIX (UNKNOWN) [Concomitant]
  10. TRAZODONE (UNKNOWN) [Concomitant]
  11. VITAMIN B COMPLEX WITH C (BEMINAL WITH C FORTIS) (CAPSULES) [Concomitant]
  12. ZANTAC (RANITIDINE HYDROCHLORIDE) (UNKNOWN) [Concomitant]
  13. LASIX (FUROSEMIDE) (UNKNOWN) [Concomitant]

REACTIONS (6)
  - Catheter site infection [None]
  - Neutropenia [None]
  - Thrombocytopenia [None]
  - Haemoglobin decreased [None]
  - Staphylococcal bacteraemia [None]
  - Furuncle [None]
